FAERS Safety Report 20953391 (Version 1)
Quarter: 2022Q2

REPORT INFORMATION
  Report Type: Report from Study
  Country: FR (occurrence: FR)
  Receive Date: 20220613
  Receipt Date: 20220613
  Transmission Date: 20220721
  Serious: Yes (Other)
  Sender: FDA-Public Use
  Company Number: FR-SA-SAC20220606000922

PATIENT
  Age: 61 Year
  Sex: Male
  Weight: 84 kg

DRUGS (17)
  1. ISATUXIMAB [Suspect]
     Active Substance: ISATUXIMAB
     Indication: Plasma cell myeloma refractory
     Dosage: 850 MG
     Dates: start: 20220330, end: 20220330
  2. ISATUXIMAB [Suspect]
     Active Substance: ISATUXIMAB
     Dosage: 850 MG (STOPED SINCE: 25-MAY-2022)
     Dates: start: 20220511, end: 20220525
  3. ISATUXIMAB [Suspect]
     Active Substance: ISATUXIMAB
     Dosage: 850 MG (RESTARTED)
     Dates: start: 20220601
  4. POMALIDOMIDE [Suspect]
     Active Substance: POMALIDOMIDE
     Indication: Plasma cell myeloma refractory
     Dosage: 3 MG
     Dates: start: 20200330, end: 20220330
  5. POMALIDOMIDE [Suspect]
     Active Substance: POMALIDOMIDE
     Dosage: 3 MG (STOPPED SINCE: 25-MAY-2022)
     Dates: start: 20220518, end: 20220525
  6. POMALIDOMIDE [Suspect]
     Active Substance: POMALIDOMIDE
     Dosage: 2 MG (RESTARTED)
     Dates: start: 20220601
  7. CARFILZOMIB [Suspect]
     Active Substance: CARFILZOMIB
     Indication: Plasma cell myeloma refractory
     Dosage: 118 MG
     Dates: start: 20220330, end: 20220330
  8. CARFILZOMIB [Suspect]
     Active Substance: CARFILZOMIB
     Dosage: 118 MG (STOPPED SINCE: 25-MAY-2022)
     Dates: start: 20220511, end: 20220525
  9. CARFILZOMIB [Suspect]
     Active Substance: CARFILZOMIB
     Dosage: 118 MG (RESTARTED)
     Dates: start: 20220601
  10. DEXAMETHASONE [Concomitant]
     Active Substance: DEXAMETHASONE
     Indication: Plasma cell myeloma refractory
     Dosage: 40 MG
     Dates: start: 20220330
  11. LEVOFLOXACIN [Concomitant]
     Active Substance: LEVOFLOXACIN
     Indication: Thrombosis
     Dosage: 4000 IU, QD
     Dates: start: 20220330
  12. VALACYCLOVIR [Concomitant]
     Active Substance: VALACYCLOVIR HYDROCHLORIDE
     Indication: Infection
     Dosage: 1000 MG, QD
     Dates: start: 20220330
  13. PENICILLIN V BENZATHINE [Concomitant]
     Active Substance: PENICILLIN V BENZATHINE
     Indication: Infection
     Dosage: 280 IU, QD
     Dates: start: 20220330
  14. BACTRIM [Concomitant]
     Active Substance: SULFAMETHOXAZOLE\TRIMETHOPRIM
     Indication: Infection
     Dosage: UNK, TIW (THREE/WEEK)
     Dates: start: 20220330
  15. LEUCOVORIN CALCIUM [Concomitant]
     Active Substance: LEUCOVORIN CALCIUM
     Indication: Infection
     Dosage: 25 MG, QW
     Dates: start: 20220330
  16. LEVOTHYROXINE [Concomitant]
     Active Substance: LEVOTHYROXINE
     Indication: Hypothyroidism
     Dosage: UNK
  17. PAROXETINE [Concomitant]
     Active Substance: PAROXETINE
     Indication: Depression
     Dosage: UNK

REACTIONS (1)
  - Neutropenia [Recovered/Resolved]

NARRATIVE: CASE EVENT DATE: 20220523
